FAERS Safety Report 5137766-1 (Version None)
Quarter: 2006Q4

REPORT INFORMATION
  Report Type: 
  Country: None (occurrence: None)
  Receive Date: 20061030
  Receipt Date: 20060105
  Transmission Date: 20070319
  Serious: Yes (Disabling)
  Sender: FDA-Public Use
  Company Number: US-GLAXOSMITHKLINE-A0587964A

PATIENT
  Age: 53 Year
  Sex: Female

DRUGS (10)
  1. ADVAIR HFA [Suspect]
     Indication: ASTHMA
     Dosage: 1PUFF TWICE PER DAY
     Route: 055
     Dates: start: 20051230, end: 20060104
  2. PREMARIN [Concomitant]
  3. SYNTHROID [Concomitant]
  4. IMIPRAMINE [Concomitant]
  5. PROTONIX [Concomitant]
  6. PROZAC [Concomitant]
  7. FLONASE [Concomitant]
  8. DETROL [Concomitant]
  9. PARLODEL [Concomitant]
  10. BENADRYL [Concomitant]

REACTIONS (1)
  - RASH [None]
